FAERS Safety Report 9636857 (Version 3)
Quarter: 2013Q4

REPORT INFORMATION
  Report Type: Report from Study
  Country: US (occurrence: US)
  Receive Date: 20131022
  Receipt Date: 20131203
  Transmission Date: 20140711
  Serious: No
  Sender: FDA-Public Use
  Company Number: US-BIOGENIDEC-2013BI099316

PATIENT
  Age: 47 Year
  Sex: Female
  Weight: 90 kg

DRUGS (8)
  1. TECFIDERA [Suspect]
     Indication: MULTIPLE SCLEROSIS
     Route: 048
     Dates: start: 20130702
  2. TECFIDERA [Suspect]
     Indication: MULTIPLE SCLEROSIS
     Route: 048
  3. CYMBALTA [Concomitant]
     Indication: DEPRESSION
     Route: 048
     Dates: start: 20120223
  4. GABAPENTIN [Concomitant]
     Indication: PAIN
     Route: 048
     Dates: start: 20060411
  5. PROVIGIL [Concomitant]
     Indication: FATIGUE
     Route: 048
     Dates: start: 20060411
  6. IMIPRAMINE [Concomitant]
     Indication: ENURESIS
     Route: 048
     Dates: start: 20130425
  7. AMANTADINE HCL [Concomitant]
     Indication: FATIGUE
     Route: 048
  8. MELOXICAM [Concomitant]
     Route: 048

REACTIONS (1)
  - Muscle spasms [Unknown]
